FAERS Safety Report 19373042 (Version 3)
Quarter: 2021Q4

REPORT INFORMATION
  Report Type: Spontaneous
  Country: US (occurrence: US)
  Receive Date: 20210604
  Receipt Date: 20211209
  Transmission Date: 20220303
  Serious: No
  Sender: FDA-Public Use
  Company Number: US-LUPIN PHARMACEUTICALS INC.-2021-08227

PATIENT
  Age: 60 Year
  Sex: Male

DRUGS (2)
  1. TESTOSTERONE GEL 1.62% [Suspect]
     Active Substance: TESTOSTERONE
     Indication: Blood testosterone decreased
     Dosage: UNK
     Route: 065
     Dates: start: 2020
  2. TESTOSTERONE GEL 1.62% [Suspect]
     Active Substance: TESTOSTERONE
     Dosage: 20 MILLIGRAM, QD
     Route: 065
     Dates: start: 20210507

REACTIONS (5)
  - Device malfunction [Unknown]
  - Incorrect dose administered by device [Unknown]
  - Manufacturing process control procedure issue [Unknown]
  - Drug dose omission by device [Unknown]
  - No adverse event [Unknown]
